FAERS Safety Report 9057789 (Version 1)
Quarter: 2013Q1

REPORT INFORMATION
  Report Type: Spontaneous
  Country: US (occurrence: None)
  Receive Date: 20130204
  Receipt Date: 20130204
  Transmission Date: 20140127
  Serious: Yes (Hospitalization)
  Sender: FDA-Public Use
  Company Number: None

PATIENT
  Age: 56 Year
  Sex: Male
  Weight: 104.33 kg

DRUGS (1)
  1. VIMPAT [Suspect]
     Indication: CONVULSION
     Dosage: 400MG IN AM/400MG IN PM  800MG TOTAL/DAY  PRESENT DAILY DOSE 600MG--

REACTIONS (12)
  - Dizziness [None]
  - Vertigo [None]
  - Vomiting [None]
  - Hyperhidrosis [None]
  - Diarrhoea [None]
  - Dysstasia [None]
  - Retching [None]
  - Dysarthria [None]
  - Headache [None]
  - Loss of consciousness [None]
  - Coordination abnormal [None]
  - Incorrect dose administered [None]
